FAERS Safety Report 8127065-8 (Version None)
Quarter: 2012Q1

REPORT INFORMATION
  Report Type: 
  Country: None (occurrence: None)
  Receive Date: 20120210
  Receipt Date: 20120130
  Transmission Date: 20120608
  Serious: Yes (Hospitalization, Other)
  Sender: FDA-Public Use
  Company Number: US-SANOFI-AVENTIS-2011SA068025

PATIENT
  Age: 77 Year
  Sex: Male
  Weight: 80 kg

DRUGS (4)
  1. METFORMIN HCL [Suspect]
  2. SOLOSTAR [Suspect]
     Dates: start: 20110801
  3. LANTUS [Suspect]
     Dosage: DOSE:20 UNIT(S)
     Route: 058
  4. GLIPIZIDE [Suspect]

REACTIONS (4)
  - PRODUCT QUALITY ISSUE [None]
  - BLOOD GLUCOSE INCREASED [None]
  - TRANSIENT ISCHAEMIC ATTACK [None]
  - HYPOGLYCAEMIA [None]
